FAERS Safety Report 15526020 (Version 3)
Quarter: 2018Q4

REPORT INFORMATION
  Report Type: Spontaneous
  Country: US (occurrence: US)
  Receive Date: 20181018
  Receipt Date: 20181115
  Transmission Date: 20190205
  Serious: Yes (Hospitalization)
  Sender: FDA-Public Use
  Company Number: US-SAKK-2018SA287682AA

PATIENT
  Sex: Female

DRUGS (23)
  1. DIAZEPAM. [Concomitant]
     Active Substance: DIAZEPAM
     Dosage: UNK
  2. NARCAN [Concomitant]
     Active Substance: NALOXONE HYDROCHLORIDE
  3. SIMVASTATIN. [Concomitant]
     Active Substance: SIMVASTATIN
  4. POTASSIUM CHLORIDE. [Concomitant]
     Active Substance: POTASSIUM CHLORIDE
  5. COLACE [Concomitant]
     Active Substance: DOCUSATE SODIUM
     Dosage: UNK
  6. PLAQUENIL [Concomitant]
     Active Substance: HYDROXYCHLOROQUINE SULFATE
  7. PROTONIX [OMEPRAZOLE] [Concomitant]
  8. ARAVA [Concomitant]
     Active Substance: LEFLUNOMIDE
     Dosage: UNK MG
  9. AZATHIOPRINE. [Concomitant]
     Active Substance: AZATHIOPRINE
     Dosage: UNK MG
  10. EFFEXOR [Concomitant]
     Active Substance: VENLAFAXINE HYDROCHLORIDE
     Dosage: UNK MG
  11. REMERON [Concomitant]
     Active Substance: MIRTAZAPINE
  12. TYLENOL [Concomitant]
     Active Substance: ACETAMINOPHEN
  13. LEVOTHYROXIN [Concomitant]
     Active Substance: LEVOTHYROXINE
  14. SPIRONOLACTONE. [Concomitant]
     Active Substance: SPIRONOLACTONE
  15. LANTUS [Concomitant]
     Active Substance: INSULIN GLARGINE
     Dosage: UNK U
  16. KEVZARA [Suspect]
     Active Substance: SARILUMAB
     Dosage: 200 MG, QOW
     Route: 058
     Dates: start: 20180921
  17. CALCITRIOL. [Concomitant]
     Active Substance: CALCITRIOL
     Dosage: UNK
  18. TRILEPTAL [Concomitant]
     Active Substance: OXCARBAZEPINE
  19. ZOFRAN [ONDANSETRON] [Concomitant]
  20. ARTIFICIAL TEAR [Concomitant]
     Active Substance: LANOLIN\MINERAL OIL\PETROLATUM
  21. DEMADEX [TORASEMIDE] [Concomitant]
     Dosage: UNK
  22. VOLTAREN [DICLOFENAC] [Concomitant]
     Active Substance: DICLOFENAC SODIUM
  23. NOVOLOG [Concomitant]
     Active Substance: INSULIN ASPART

REACTIONS (6)
  - Corneal abrasion [Not Recovered/Not Resolved]
  - Viral infection [Not Recovered/Not Resolved]
  - Injection site bruising [Not Recovered/Not Resolved]
  - Injection site mass [Not Recovered/Not Resolved]
  - Dry eye [Not Recovered/Not Resolved]
  - Ocular hyperaemia [Unknown]

NARRATIVE: CASE EVENT DATE: 2018
